FAERS Safety Report 8579532-0 (Version None)
Quarter: 2012Q3

REPORT INFORMATION
  Report Type: 
  Country: None (occurrence: None)
  Receive Date: 20120808
  Receipt Date: 20120730
  Transmission Date: 20120928
  Serious: Yes (Other)
  Sender: FDA-Public Use
  Company Number: RU-JNJFOC-20120801717

PATIENT
  Sex: Male
  Weight: 40 kg

DRUGS (3)
  1. REMICADE [Suspect]
     Route: 042
     Dates: start: 20120611
  2. REMICADE [Suspect]
     Route: 042
     Dates: start: 20120723
  3. REMICADE [Suspect]
     Indication: ANKYLOSING SPONDYLITIS
     Route: 042
     Dates: start: 20120625

REACTIONS (6)
  - DYSPNOEA [None]
  - BRONCHOSPASM [None]
  - LARYNGOSPASM [None]
  - INFUSION RELATED REACTION [None]
  - CHOKING SENSATION [None]
  - CYANOSIS [None]
